FAERS Safety Report 8053969-0 (Version None)
Quarter: 2012Q1

REPORT INFORMATION
  Report Type: 
  Country: None (occurrence: None)
  Receive Date: 20120118
  Receipt Date: 20120103
  Transmission Date: 20120608
  Serious: Yes (Other)
  Sender: FDA-Public Use
  Company Number: GB-ASTELLAS-2012US000445

PATIENT
  Sex: Male

DRUGS (8)
  1. TARCEVA [Suspect]
     Dosage: UNK
     Route: 048
     Dates: start: 20100101
  2. ISOSORBIDE DINITRATE [Concomitant]
     Indication: PRODUCT USED FOR UNKNOWN INDICATION
     Dosage: UNK
     Route: 065
  3. TARCEVA [Suspect]
     Indication: PRODUCT USED FOR UNKNOWN INDICATION
     Dosage: 150 MG, UID/QD
     Route: 048
  4. ATENOLOL [Concomitant]
     Indication: PRODUCT USED FOR UNKNOWN INDICATION
     Dosage: 25 MG, UNKNOWN/D
     Route: 065
  5. CHEMOTHERAPEUTICS NOS [Concomitant]
     Indication: LUNG ADENOCARCINOMA METASTATIC
     Dosage: UNK
     Route: 065
  6. ACETAMINOPHEN [Concomitant]
     Indication: PRODUCT USED FOR UNKNOWN INDICATION
     Dosage: UNK
     Route: 065
  7. ATENOLOL [Concomitant]
     Dosage: 100 MG, UNKNOWN/D
     Route: 065
     Dates: start: 20100412
  8. ISOSORBIDE DINITRATE [Concomitant]
     Dosage: 60 MG, UNKNOWN/D
     Route: 065
     Dates: start: 20100412

REACTIONS (16)
  - ECTROPION [None]
  - EVERSION OF LACRIMAL PUNCTUM [None]
  - CORNEAL STAINING [None]
  - MACULAR DEGENERATION [None]
  - DIARRHOEA [None]
  - MACULAR PIGMENTATION [None]
  - DECREASED APPETITE [None]
  - DACRYOSTENOSIS ACQUIRED [None]
  - JOINT RANGE OF MOTION DECREASED [None]
  - EYE DISCHARGE [None]
  - GROWTH OF EYELASHES [None]
  - WEIGHT DECREASED [None]
  - NAUSEA [None]
  - LENTICULAR OPACITIES [None]
  - LACRIMATION INCREASED [None]
  - RASH PRURITIC [None]
